FAERS Safety Report 5291893-7 (Version None)
Quarter: 2007Q2

REPORT INFORMATION
  Report Type: 
  Country: None (occurrence: None)
  Receive Date: 20070406
  Receipt Date: 20070406
  Transmission Date: 20071010
  Serious: Yes (Other)
  Sender: FDA-Public Use
  Company Number: None

PATIENT
  Age: 66 Year
  Sex: Female
  Weight: 63.5036 kg

DRUGS (1)
  1. CAPZASIN - HP [Suspect]
     Dosage: USED ONLY ONCE + VERY LITTLE
     Dates: start: 20070112

REACTIONS (1)
  - APPLICATION SITE IRRITATION [None]
